FAERS Safety Report 25610860 (Version 9)
Quarter: 2025Q4

REPORT INFORMATION
  Report Type: Spontaneous
  Country: CA (occurrence: CA)
  Receive Date: 20250728
  Receipt Date: 20251130
  Transmission Date: 20260118
  Serious: Yes (Disabling, Other)
  Sender: ASTELLAS
  Company Number: CA-PFIZER INC-PV202500010530

PATIENT
  Age: 65 Year
  Sex: Female
  Weight: 61 kg

DRUGS (29)
  1. PADCEV [Suspect]
     Active Substance: ENFORTUMAB VEDOTIN-EJFV
     Indication: Transitional cell carcinoma metastatic
     Dosage: 62 MG, CYCLIC, (1MG/KG) D1 AND D8, CYCLE #2 INFUSION #4?DRUG DOSAGE FORM: POWDER FOR SOLUTION FOR IN
     Route: 042
     Dates: start: 20250121
  2. PADCEV [Suspect]
     Active Substance: ENFORTUMAB VEDOTIN-EJFV
     Dosage: 61 MG D1 + D8 OF 21 DAY CYCLE?DRUG DOSAGE FORM: POWDER FOR SOLUTION FOR INFUSION
     Route: 042
     Dates: start: 20250218
  3. PADCEV [Suspect]
     Active Substance: ENFORTUMAB VEDOTIN-EJFV
     Dosage: 61 MG, CYCLIC, D1 AND D8. INFUSION #06?DRUG DOSAGE FORM: POWDER FOR SOLUTION FOR INFUSION
     Route: 042
     Dates: start: 20250225
  4. PADCEV [Suspect]
     Active Substance: ENFORTUMAB VEDOTIN-EJFV
     Dosage: 46 MG, CYCLIC, D1 AND D8 OF 21 DAY CYCLE?DRUG DOSAGE FORM: POWDER FOR SOLUTION FOR INFUSION
     Route: 042
     Dates: start: 20250311
  5. PADCEV [Suspect]
     Active Substance: ENFORTUMAB VEDOTIN-EJFV
     Dosage: 46 MG, CYCLIC, D1 AND D8 OF 21 DAY CYCLE?DRUG DOSAGE FORM: POWDER FOR SOLUTION FOR INFUSION
     Route: 042
     Dates: start: 20250318
  6. PADCEV [Suspect]
     Active Substance: ENFORTUMAB VEDOTIN-EJFV
     Dosage: 44 MG, CYCLIC, D1 AND D8 OF 21 DAY CYCLE?DRUG DOSAGE FORM: POWDER FOR SOLUTION FOR INFUSION
     Route: 042
     Dates: start: 20250429
  7. PADCEV [Suspect]
     Active Substance: ENFORTUMAB VEDOTIN-EJFV
     Dosage: 44 MG, CYCLIC, D1 AND D8 OF 21 DAY CYCLE 5?DRUG DOSAGE FORM: POWDER FOR SOLUTION FOR INFUSION
     Route: 042
     Dates: start: 20250506
  8. PADCEV [Suspect]
     Active Substance: ENFORTUMAB VEDOTIN-EJFV
     Dosage: 44 MG, CYCLIC DAY 1 AND DAY 8 OF 21-DAY CYCLE?DRUG DOSAGE FORM: POWDER FOR SOLUTION FOR INFUSION
     Route: 042
     Dates: start: 20250605
  9. PADCEV [Suspect]
     Active Substance: ENFORTUMAB VEDOTIN-EJFV
     Dosage: 44 MG, CYCLIC DAY 1 AND DAY 8 OF 21-DAY CYCLE?DRUG DOSAGE FORM: POWDER FOR SOLUTION FOR INFUSION
     Route: 042
     Dates: start: 20250612
  10. PADCEV [Suspect]
     Active Substance: ENFORTUMAB VEDOTIN-EJFV
     Dosage: 44 MG, CYCLIC DAY 1 AND DAY 8 OF 21-DAY CYCLE?DRUG DOSAGE FORM: POWDER FOR SOLUTION FOR INFUSION
     Route: 042
     Dates: start: 20250623
  11. PADCEV [Suspect]
     Active Substance: ENFORTUMAB VEDOTIN-EJFV
     Dosage: 44 MG, CYCLIC DAY 1 AND DAY 8 OF 21-DAY CYCLE?DRUG DOSAGE FORM: POWDER FOR SOLUTION FOR INFUSION
     Route: 042
     Dates: start: 20250630
  12. PADCEV [Suspect]
     Active Substance: ENFORTUMAB VEDOTIN-EJFV
     Dosage: 43 MG, CYCLIC, DAY 1 AND DAY 8 OF 21-DAY CYCLE?DRUG DOSAGE FORM: POWDER FOR SOLUTION FOR INFUSION
     Route: 042
     Dates: start: 20250714
  13. PADCEV [Suspect]
     Active Substance: ENFORTUMAB VEDOTIN-EJFV
     Dosage: 43 MG, CYCLIC, DAY 1 AND DAY 8 OF 21-DAY CYCLE?DRUG DOSAGE FORM: POWDER FOR SOLUTION FOR INFUSION
     Route: 042
     Dates: start: 20250721
  14. PADCEV [Suspect]
     Active Substance: ENFORTUMAB VEDOTIN-EJFV
     Dosage: 28 MG, CYCLIC, D1 D8 OF 21 DAY CYCLE?POWDER FOR SOLUTION FOR INFUSION
     Route: 042
     Dates: start: 20250805
  15. PADCEV [Suspect]
     Active Substance: ENFORTUMAB VEDOTIN-EJFV
     Dosage: 28 MG, CYCLIC, ON DAY 1 AND DAY 8 OF 21 DAY CYCLE?POWDER FOR SOLUTION FOR INFUSION
     Route: 042
     Dates: start: 20250811
  16. PADCEV [Suspect]
     Active Substance: ENFORTUMAB VEDOTIN-EJFV
     Dosage: 43 MG, CYCLIC, DAY 1 AND DAY 8 OF 21-DAY CYCLE?POWDER FOR SOLUTION FOR INFUSION
     Route: 042
     Dates: start: 20251024
  17. PADCEV [Suspect]
     Active Substance: ENFORTUMAB VEDOTIN-EJFV
     Dosage: 43 MG, CYCLIC, DAY 1 AND DAY 8 OF 21-DAY CYCLE?POWDER FOR SOLUTION FOR INFUSION
     Route: 042
     Dates: start: 20251031
  18. PADCEV [Suspect]
     Active Substance: ENFORTUMAB VEDOTIN-EJFV
     Dosage: 43 MG, CYCLIC, DAY 1 AND DAY 8 OF 21-DAY CYCLE?POWDER FOR SOLUTION FOR INFUSION
     Route: 042
     Dates: start: 20251121
  19. KEYTRUDA [Suspect]
     Active Substance: PEMBROLIZUMAB
     Indication: Product used for unknown indication
     Dosage: UNK
     Route: 065
  20. ACETAMINOPHEN [Concomitant]
     Active Substance: ACETAMINOPHEN
     Indication: Product used for unknown indication
     Dosage: 325-650 MG PO, AS NEEDED
     Route: 048
  21. HYDROXYCHLOROQUINE [Concomitant]
     Active Substance: HYDROXYCHLOROQUINE
     Indication: Product used for unknown indication
     Dosage: 200 MG, DAILY
     Route: 048
  22. METHOTREXATE [Concomitant]
     Active Substance: METHOTREXATE
     Indication: Product used for unknown indication
     Dosage: 20 MG, WEEKLY
     Route: 058
  23. HYDROMORPHONE [Concomitant]
     Active Substance: HYDROMORPHONE
     Indication: Product used for unknown indication
     Dosage: 1 MG, AS NEEDED
     Route: 065
  24. DIMENHYDRINATE [Concomitant]
     Active Substance: DIMENHYDRINATE
     Indication: Product used for unknown indication
     Dosage: 25-50MG PO/IV, AS NEEDED
     Route: 048
  25. EPINEPHRINE [Concomitant]
     Active Substance: EPINEPHRINE
     Indication: Product used for unknown indication
     Dosage: ORAL/INTRAVENOUS, AS NEEDED
     Route: 048
  26. ALBUTEROL [Concomitant]
     Active Substance: ALBUTEROL
     Indication: Product used for unknown indication
     Dosage: AS NEEDED
     Route: 048
  27. HYDROCORTISONE [Concomitant]
     Active Substance: HYDROCORTISONE
     Indication: Product used for unknown indication
     Dosage: 100 MG (INTRAVENOUS), AS NEEDED
     Route: 042
  28. METHADONE [Concomitant]
     Active Substance: METHADONE HYDROCHLORIDE
     Indication: Product used for unknown indication
     Route: 042
  29. FENTANYL [Concomitant]
     Active Substance: FENTANYL
     Indication: Product used for unknown indication
     Route: 042

REACTIONS (18)
  - Spinal fracture [Unknown]
  - Metastases to lymph nodes [Unknown]
  - Arthralgia [Unknown]
  - Neuropathy peripheral [Unknown]
  - Fatigue [Recovering/Resolving]
  - Nausea [Recovered/Resolved]
  - Decreased appetite [Not Recovered/Not Resolved]
  - Chills [Not Recovered/Not Resolved]
  - Constipation [Unknown]
  - Diarrhoea [Recovered/Resolved]
  - Pain in extremity [Unknown]
  - Heart rate decreased [Not Recovered/Not Resolved]
  - Pain [Not Recovered/Not Resolved]
  - Urinary tract infection [Unknown]
  - Flank pain [Unknown]
  - Vomiting [Recovered/Resolved]
  - Oedema peripheral [Not Recovered/Not Resolved]
  - Brain fog [Unknown]

NARRATIVE: CASE EVENT DATE: 20250101
